FAERS Safety Report 9472197 (Version 2)
Quarter: 2014Q2

REPORT INFORMATION
  Report Type: Spontaneous
  Country: IT (occurrence: IT)
  Receive Date: 20130823
  Receipt Date: 20140417
  Transmission Date: 20141212
  Serious: Yes (Hospitalization)
  Sender: FDA-Public Use
  Company Number: IT-CELGENEUS-083-21880-13081642

PATIENT
  Age: 72 Year
  Sex: Male

DRUGS (3)
  1. REVLIMID [Suspect]
     Indication: PLASMA CELL MYELOMA
     Route: 048
     Dates: start: 20130501, end: 20130709
  2. CYMBALTA [Concomitant]
     Indication: PROPHYLAXIS
     Route: 048
  3. TARGIN [Concomitant]
     Indication: PRODUCT USED FOR UNKNOWN INDICATION
     Dosage: POSOLOGICAL UNITS
     Route: 048

REACTIONS (1)
  - Atrioventricular block [Recovered/Resolved with Sequelae]
